FAERS Safety Report 11178130 (Version 1)
Quarter: 2015Q2

REPORT INFORMATION
  Report Type: Spontaneous
  Country: FR (occurrence: FR)
  Receive Date: 20150610
  Receipt Date: 20150610
  Transmission Date: 20150821
  Serious: Yes (Hospitalization)
  Sender: FDA-Public Use
  Company Number: FR-OTSUKA-2015_002999

PATIENT
  Age: 33 Year
  Sex: Female

DRUGS (4)
  1. ABILIFY [Suspect]
     Active Substance: ARIPIPRAZOLE
     Indication: DYSTHYMIC DISORDER
     Dosage: 10 MG, QD
     Route: 048
     Dates: start: 20150113, end: 20150211
  2. ABILIFY MAINTENA [Suspect]
     Active Substance: ARIPIPRAZOLE
     Indication: DYSTHYMIC DISORDER
     Dosage: 400 MG, QM
     Route: 030
     Dates: start: 20150127, end: 20150420
  3. ABILIFY MAINTENA [Suspect]
     Active Substance: ARIPIPRAZOLE
     Indication: SCHIZOPHRENIA
  4. ABILIFY [Suspect]
     Active Substance: ARIPIPRAZOLE
     Indication: SCHIZOPHRENIA
     Dosage: 10 MG, QD
     Route: 048
     Dates: start: 20150417

REACTIONS (4)
  - Mania [Recovering/Resolving]
  - Drug ineffective [Unknown]
  - Off label use [Unknown]
  - Psychiatric decompensation [Recovering/Resolving]

NARRATIVE: CASE EVENT DATE: 201503
